FAERS Safety Report 4874014-1 (Version None)
Quarter: 2006Q1

REPORT INFORMATION
  Report Type: 
  Country: None (occurrence: None)
  Receive Date: 20060106
  Receipt Date: 20051228
  Transmission Date: 20060701
  Serious: Yes (Hospitalization)
  Sender: FDA-Public Use
  Company Number: FR-AVENTIS-200514392FR

PATIENT
  Age: 66 Year
  Sex: Female

DRUGS (9)
  1. LASILIX [Suspect]
     Route: 048
     Dates: start: 20020815, end: 20051014
  2. ZECLAR [Suspect]
     Route: 048
     Dates: start: 20051001, end: 20051014
  3. MONO-TILDIEM [Concomitant]
     Route: 048
     Dates: start: 20051010, end: 20051014
  4. ENALAPRIL MALEATE AND HYDROCHLOROTHIAZIDE [Concomitant]
     Route: 048
     Dates: end: 20051010
  5. LEVOTHYROXINE SODIUM [Concomitant]
  6. VASTAREL [Concomitant]
     Route: 048
  7. CIRKAN [Concomitant]
     Route: 048
  8. FENOFIBRATE [Concomitant]
     Route: 048
  9. LASILIX [Concomitant]
     Route: 048

REACTIONS (2)
  - ANGIONEUROTIC OEDEMA [None]
  - RESPIRATORY DISORDER [None]
